FAERS Safety Report 6377770-9 (Version None)
Quarter: 2009Q3

REPORT INFORMATION
  Report Type: 
  Country: None (occurrence: None)
  Receive Date: 20090925
  Receipt Date: 20090917
  Transmission Date: 20100115
  Serious: Yes (Hospitalization)
  Sender: FDA-Public Use
  Company Number: CA-ABBOTT-09P-028-0598089-00

PATIENT
  Sex: Male
  Weight: 97.156 kg

DRUGS (4)
  1. LUPRON DEPOT [Suspect]
     Indication: PROSTATE CANCER
     Route: 050
     Dates: start: 20080206, end: 20090917
  2. NOVAMILOR [Concomitant]
     Indication: HYPERTENSION
     Dosage: 5/50MG DAILY
     Route: 048
     Dates: start: 20070101
  3. MULTI-VITAMIN [Concomitant]
     Indication: DRUG USE FOR UNKNOWN INDICATION
  4. OXYGEN [Concomitant]
     Indication: DRUG USE FOR UNKNOWN INDICATION

REACTIONS (5)
  - CARDIAC DISORDER [None]
  - GENERAL PHYSICAL HEALTH DETERIORATION [None]
  - OXYGEN SUPPLEMENTATION [None]
  - PLEURAL EFFUSION [None]
  - TRANSFUSION [None]
